FAERS Safety Report 7228115-3 (Version None)
Quarter: 2011Q1

REPORT INFORMATION
  Report Type: 
  Country: None (occurrence: None)
  Receive Date: 20110114
  Receipt Date: 20110111
  Transmission Date: 20110831
  Serious: Yes (Hospitalization, Other)
  Sender: FDA-Public Use
  Company Number: JP-PFIZER INC-2010180571

PATIENT
  Age: 44 Year
  Sex: Male

DRUGS (8)
  1. SOLU-MEDROL [Suspect]
     Indication: ANAPHYLACTIC REACTION
     Dosage: 40 MG, SINGLE
     Dates: start: 20101112, end: 20101112
  2. ADEFURONIC [Suspect]
     Indication: BACK PAIN
     Dosage: 25 MG, 3X/DAY
     Route: 048
     Dates: start: 20101112, end: 20101112
  3. REBAMIPIDE [Suspect]
     Indication: BACK PAIN
     Dosage: 100 MG, 3X/DAY
     Route: 048
     Dates: start: 20101112, end: 20101112
  4. LOXONIN [Suspect]
     Indication: BACK PAIN
     Dosage: UNK
     Route: 062
     Dates: start: 20101112, end: 20101112
  5. LINOLOSAL [Suspect]
     Indication: BACK PAIN
     Dosage: 4 MG, SINGLE
     Route: 030
     Dates: start: 20101112, end: 20101112
  6. ATINES [Suspect]
     Indication: BACK PAIN
     Dosage: 50 MG, 3X/DAY
     Route: 048
     Dates: start: 20101112, end: 20101112
  7. SOLU-MEDROL [Suspect]
     Indication: SHOCK
  8. CARBOCAIN [Suspect]
     Indication: BACK PAIN
     Dosage: 1 %, SINGLE
     Route: 030
     Dates: start: 20101112, end: 20101112

REACTIONS (2)
  - BLOOD PRESSURE DECREASED [None]
  - SHOCK [None]
